FAERS Safety Report 19900886 (Version 2)
Quarter: 2021Q4

REPORT INFORMATION
  Report Type: Spontaneous
  Country: US (occurrence: US)
  Receive Date: 20210929
  Receipt Date: 20211004
  Transmission Date: 20220304
  Serious: Yes (Hospitalization)
  Sender: FDA-Public Use
  Company Number: US-TEVA-2021-US-1958717

PATIENT
  Age: 76 Year
  Sex: Female

DRUGS (13)
  1. OXYCODONE HYDROCHLORIDE [Suspect]
     Active Substance: OXYCODONE HYDROCHLORIDE
     Indication: Back pain
     Dosage: ON HOSPITAL DAY 1, TWO DOSES OF 5 MG GIVEN
     Route: 048
  2. OXYCODONE HYDROCHLORIDE [Suspect]
     Active Substance: OXYCODONE HYDROCHLORIDE
     Indication: Arthralgia
     Dosage: ON HOSPITAL DAY 1
     Route: 048
  3. HYDROMORPHONE [Suspect]
     Active Substance: HYDROMORPHONE
     Indication: Back pain
     Dosage: 3.75 MILLIGRAM DAILY; HOSPITAL DAY 1
     Route: 037
  4. HYDROMORPHONE [Suspect]
     Active Substance: HYDROMORPHONE
     Indication: Arthralgia
     Dosage: 3.25 MILLIGRAM DAILY; HOSPITAL DAY 2
     Route: 037
  5. HYDROMORPHONE [Suspect]
     Active Substance: HYDROMORPHONE
     Dosage: 2.7 MILLIGRAM DAILY; HOSPITAL DAY 3
     Route: 037
  6. HYDROMORPHONE [Suspect]
     Active Substance: HYDROMORPHONE
     Dosage: 1.7 MILLIGRAM DAILY; HOSPITAL DAY 4
     Route: 037
  7. HYDROMORPHONE [Suspect]
     Active Substance: HYDROMORPHONE
     Dosage: 1 MILLIGRAM DAILY; HOSPITAL DAY 5
     Route: 037
  8. HYDROMORPHONE [Suspect]
     Active Substance: HYDROMORPHONE
     Dosage: 1 MILLIGRAM DAILY; HOSPITAL DAY 6
     Route: 037
  9. BUPRENORPHINE\NALOXONE [Concomitant]
     Active Substance: BUPRENORPHINE\NALOXONE
     Indication: Drug withdrawal syndrome
     Dosage: 0.5/0.125MG AT BEDTIME ON HOSPITAL DAY 3
     Route: 060
  10. BUPRENORPHINE\NALOXONE [Concomitant]
     Active Substance: BUPRENORPHINE\NALOXONE
     Indication: Respiratory depression
     Dosage: 0.5/0.125MG TWICE A DAY ON HOSPITAL DAY 4
     Route: 060
  11. BUPRENORPHINE\NALOXONE [Concomitant]
     Active Substance: BUPRENORPHINE\NALOXONE
     Dosage: 1/0.25MG TWICE A DAY ON HOSPITAL DAY 5
     Route: 060
  12. BUPRENORPHINE\NALOXONE [Concomitant]
     Active Substance: BUPRENORPHINE\NALOXONE
     Dosage: 2/0.5MG TWICE A DAY ON HOSPITAL DAY 6
     Route: 060
  13. BUPIVACAINE [Concomitant]
     Active Substance: BUPIVACAINE
     Indication: Product used for unknown indication
     Route: 065

REACTIONS (5)
  - Withdrawal syndrome [Recovered/Resolved]
  - Nausea [Recovered/Resolved]
  - Chills [Recovered/Resolved]
  - Yawning [Recovered/Resolved]
  - Respiratory depression [Recovering/Resolving]
